FAERS Safety Report 7713400-9 (Version None)
Quarter: 2011Q3

REPORT INFORMATION
  Report Type: 
  Country: None (occurrence: None)
  Receive Date: 20110826
  Receipt Date: 20110817
  Transmission Date: 20111222
  Serious: Yes (Hospitalization, Other)
  Sender: FDA-Public Use
  Company Number: US-BAYER-2011-023521

PATIENT
  Age: 45 Year
  Sex: Female
  Weight: 112.93 kg

DRUGS (9)
  1. VIOXX [Concomitant]
     Dosage: 25 MG, QD
     Dates: start: 20021015
  2. KENALOG [Concomitant]
     Dosage: 1 ML, UNK
     Route: 030
     Dates: start: 20020814
  3. BEXTRA [Concomitant]
     Dosage: 10 MG, QD
     Dates: start: 20020814
  4. XENICAL [Concomitant]
     Dosage: 1 UNK, UNK
     Dates: start: 20020822
  5. DYAZIDE [Concomitant]
     Dosage: UNK
     Dates: start: 20021113
  6. YASMIN [Suspect]
     Indication: MENSTRUAL CYCLE MANAGEMENT
     Dosage: UNK
     Dates: start: 20021001, end: 20021101
  7. XANAX [Concomitant]
     Dosage: UNK UNK, PRN
     Dates: start: 20000101
  8. DECADRON-LA [Concomitant]
     Dosage: 1 ML, UNK
     Route: 030
     Dates: start: 20020814
  9. BUMEX [Concomitant]
     Dosage: 1 MG, PRN
     Dates: start: 20020822

REACTIONS (3)
  - PULMONARY EMBOLISM [None]
  - DEEP VEIN THROMBOSIS [None]
  - INJURY [None]
